FAERS Safety Report 5453990-2 (Version None)
Quarter: 2007Q3

REPORT INFORMATION
  Report Type: 
  Country: None (occurrence: None)
  Receive Date: 20070917
  Receipt Date: 20061002
  Transmission Date: 20080115
  Serious: Yes (Other)
  Sender: FDA-Public Use
  Company Number: US-ASTRAZENECA-2005UW15644

PATIENT
  Age: 44 Year
  Sex: Female

DRUGS (3)
  1. SEROQUEL [Suspect]
     Route: 048
  2. ANTIDEPRESSANT [Concomitant]
  3. SLEEP AID [Concomitant]

REACTIONS (2)
  - TARDIVE DYSKINESIA [None]
  - UNEVALUABLE EVENT [None]
